FAERS Safety Report 5999924-3 (Version None)
Quarter: 2008Q4

REPORT INFORMATION
  Report Type: 
  Country: None (occurrence: None)
  Receive Date: 20081215
  Receipt Date: 20081204
  Transmission Date: 20090506
  Serious: Yes (Hospitalization, Other)
  Sender: FDA-Public Use
  Company Number: PHHY2008MX30809

PATIENT
  Age: 76 Year
  Sex: Female

DRUGS (2)
  1. DIOVAN HCT [Suspect]
     Indication: HYPERTENSION
     Dosage: 160/25 MG
     Route: 048
     Dates: start: 20080201, end: 20081101
  2. DIOVAN HCT [Suspect]
     Dosage: 80/12.5 MG
     Route: 048
     Dates: start: 20081101

REACTIONS (4)
  - ASTHENIA [None]
  - HEMIPARESIS [None]
  - MUSCULAR WEAKNESS [None]
  - TONGUE PARALYSIS [None]
